FAERS Safety Report 13555052 (Version 1)
Quarter: 2017Q2

REPORT INFORMATION
  Report Type: Spontaneous
  Country: CN (occurrence: CN)
  Receive Date: 20170517
  Receipt Date: 20170517
  Transmission Date: 20170830
  Serious: Yes (Other)
  Sender: FDA-Public Use
  Company Number: CN-BAXTER-2017BAX020591

PATIENT
  Age: 38 Year
  Sex: Female
  Weight: 60 kg

DRUGS (9)
  1. PIRARUBICIN HYDROCHLORIDE [Suspect]
     Active Substance: PIRARUBICIN HYDROCHLORIDE
     Indication: CHEMOTHERAPY
     Dosage: 3 CYCLES
     Route: 041
  2. GLUCOSE [Suspect]
     Active Substance: DEXTROSE
     Indication: MEDICATION DILUTION
     Dosage: SOVENT FOR PIRARUBICIN HCI
     Route: 041
     Dates: start: 20161013, end: 20161013
  3. FLUOROURACIL. [Suspect]
     Active Substance: FLUOROURACIL
     Indication: CHEMOTHERAPY
     Dosage: 3 CYCLES
     Route: 041
  4. FLUOROURACIL. [Suspect]
     Active Substance: FLUOROURACIL
     Dosage: 4TH CYCLE
     Route: 041
     Dates: start: 20161013, end: 20161013
  5. PIRARUBICIN HYDROCHLORIDE [Suspect]
     Active Substance: PIRARUBICIN HYDROCHLORIDE
     Dosage: 4TH CYCLE
     Route: 041
     Dates: start: 20161013, end: 20161013
  6. SODIUM CHLORIDE. [Suspect]
     Active Substance: SODIUM CHLORIDE
     Indication: MEDICATION DILUTION
     Dosage: SOLVENT FOR ENDOXAN
     Route: 041
     Dates: start: 20161013, end: 20161013
  7. 0.9% SODIUM CHLORIDE INJECTION [Suspect]
     Active Substance: SODIUM CHLORIDE
     Indication: MEDICATION DILUTION
     Dosage: SOLVENT FOR FLUOROURACIL
     Route: 041
     Dates: start: 20161013, end: 20161013
  8. ENDOXAN [Suspect]
     Active Substance: CYCLOPHOSPHAMIDE
     Indication: CHEMOTHERAPY
     Dosage: 3 CYCLES
     Route: 041
  9. ENDOXAN [Suspect]
     Active Substance: CYCLOPHOSPHAMIDE
     Dosage: 4TH CYCLE
     Route: 041
     Dates: start: 20161013, end: 20161013

REACTIONS (3)
  - Agranulocytosis [Recovering/Resolving]
  - Bone marrow failure [Unknown]
  - Leukopenia [Recovering/Resolving]

NARRATIVE: CASE EVENT DATE: 20161021
